FAERS Safety Report 6783168-1 (Version None)
Quarter: 2010Q2

REPORT INFORMATION
  Report Type: 
  Country: None (occurrence: None)
  Receive Date: 20100622
  Receipt Date: 20100611
  Transmission Date: 20101027
  Serious: Yes (Other)
  Sender: FDA-Public Use
  Company Number: FR-PFIZER INC-2010057837

PATIENT
  Age: 41 Year
  Sex: Male
  Weight: 85 kg

DRUGS (6)
  1. CHAMPIX [Suspect]
     Indication: SMOKING CESSATION THERAPY
     Dosage: 1 MG DAILY
     Dates: start: 20100216, end: 20100315
  2. NICOPATCH [Suspect]
     Indication: SMOKING CESSATION THERAPY
     Dosage: 14 MG DAILY
     Dates: start: 20100216, end: 20100315
  3. XYZAL [Concomitant]
     Indication: HYPERSENSITIVITY
     Dosage: 5 MG, UNK
     Route: 048
  4. MONTELUKAST [Concomitant]
     Indication: HYPERSENSITIVITY
     Dosage: 10 MG, UNK
     Route: 048
  5. IMOVANE [Concomitant]
     Indication: ANXIETY
     Dosage: 7.5 MG, UNK
     Route: 048
  6. STRESAM [Concomitant]
     Indication: ANXIETY
     Dosage: UNK
     Route: 048

REACTIONS (2)
  - HEMIPARESIS [None]
  - NECK PAIN [None]
